FAERS Safety Report 5127285-0 (Version None)
Quarter: 2006Q4

REPORT INFORMATION
  Report Type: 
  Country: None (occurrence: None)
  Receive Date: 20061010
  Receipt Date: 20060927
  Transmission Date: 20070319
  Serious: Yes (Hospitalization)
  Sender: FDA-Public Use
  Company Number: US018352

PATIENT
  Age: 57 Year
  Sex: Female

DRUGS (4)
  1. TRISENOX [Suspect]
     Indication: ACUTE PROMYELOCYTIC LEUKAEMIA
     Dosage: 8.475 MG QD INTRAVENOUS DRIP
     Route: 041
     Dates: start: 20060602, end: 20060701
  2. RANITIDINE HYDROCHLORIDE [Concomitant]
  3. ALLOPURINOL [Concomitant]
  4. PRAVASTATIN SODIUM [Concomitant]

REACTIONS (3)
  - ELECTROCARDIOGRAM QT PROLONGED [None]
  - HEPATIC FUNCTION ABNORMAL [None]
  - WHITE BLOOD CELL COUNT DECREASED [None]
